FAERS Safety Report 5194765-1 (Version None)
Quarter: 2006Q4

REPORT INFORMATION
  Report Type: 
  Country: None (occurrence: None)
  Receive Date: 20061229
  Receipt Date: 20061220
  Transmission Date: 20070319
  Serious: Yes (Other)
  Sender: FDA-Public Use
  Company Number: NL-ELI_LILLY_AND_COMPANY-NL200612004324

PATIENT
  Sex: Male

DRUGS (1)
  1. ZYPREXA [Suspect]
     Dosage: UNK, UNKNOWN
     Route: 065

REACTIONS (6)
  - ARRHYTHMIA [None]
  - CONFUSIONAL STATE [None]
  - METABOLIC SYNDROME [None]
  - MOVEMENT DISORDER [None]
  - RENAL DISORDER [None]
  - WEIGHT INCREASED [None]
